APPROVED DRUG PRODUCT: CARISOPRODOL
Active Ingredient: CARISOPRODOL
Strength: 350MG
Dosage Form/Route: TABLET;ORAL
Application: A040397 | Product #001
Applicant: EPIC PHARMA LLC
Approved: Sep 21, 2000 | RLD: No | RS: No | Type: DISCN